FAERS Safety Report 25724644 (Version 1)
Quarter: 2025Q3

REPORT INFORMATION
  Report Type: Report from Study
  Country: US (occurrence: US)
  Receive Date: 20250826
  Receipt Date: 20250826
  Transmission Date: 20251020
  Serious: Yes (Other)
  Sender: UCB
  Company Number: US-UCBSA-2025051578

PATIENT

DRUGS (1)
  1. BIMEKIZUMAB [Suspect]
     Active Substance: BIMEKIZUMAB
     Indication: Psoriatic arthropathy
     Dosage: UNK UNK, EV 4 WEEKS
     Route: 058
     Dates: start: 20250529

REACTIONS (3)
  - Psoriatic arthropathy [Unknown]
  - Injection site pain [Unknown]
  - Therapeutic response shortened [Unknown]

NARRATIVE: CASE EVENT DATE: 20250101
